FAERS Safety Report 5607890-5 (Version None)
Quarter: 2008Q1

REPORT INFORMATION
  Report Type: 
  Country: None (occurrence: None)
  Receive Date: 20080130
  Receipt Date: 20080122
  Transmission Date: 20080703
  Serious: Yes (Hospitalization)
  Sender: FDA-Public Use
  Company Number: JP-JNJFOC-20071007512

PATIENT
  Sex: Female
  Weight: 47 kg

DRUGS (9)
  1. RISPERDAL [Suspect]
     Indication: DEMENTIA ALZHEIMER'S TYPE
     Route: 048
  2. GRAMALIL [Concomitant]
  3. GRAMALIL [Concomitant]
  4. GRAMALIL [Concomitant]
     Indication: DEMENTIA ALZHEIMER'S TYPE
  5. SENNOSIDE [Concomitant]
     Indication: CONSTIPATION
  6. DONEPEZIL HCL [Concomitant]
  7. DONEPEZIL HCL [Concomitant]
     Indication: DEMENTIA ALZHEIMER'S TYPE
  8. LASIX [Concomitant]
     Indication: OEDEMA
  9. SULBACTAM [Concomitant]
     Indication: PNEUMONIA
     Route: 042

REACTIONS (5)
  - BLISTER [None]
  - DEPRESSED LEVEL OF CONSCIOUSNESS [None]
  - OEDEMA PERIPHERAL [None]
  - RENAL IMPAIRMENT [None]
  - STUPOR [None]
